FAERS Safety Report 10632139 (Version 2)
Quarter: 2014Q4

REPORT INFORMATION
  Report Type: Spontaneous
  Country: US (occurrence: US)
  Receive Date: 20141205
  Receipt Date: 20141205
  Transmission Date: 20150529
  Serious: No
  Sender: FDA-Public Use
  Company Number: US-BRISTOL-MYERS SQUIBB COMPANY-21411988

PATIENT
  Age: 35 Year
  Sex: Male
  Weight: 120.18 kg

DRUGS (4)
  1. BYDUREON [Suspect]
     Active Substance: EXENATIDE
     Indication: TYPE 2 DIABETES MELLITUS
     Route: 058
  2. GLYBURIDE. [Concomitant]
     Active Substance: GLYBURIDE
     Indication: TYPE 2 DIABETES MELLITUS
  3. METFORMIN HCL [Concomitant]
     Active Substance: METFORMIN HYDROCHLORIDE
     Indication: TYPE 2 DIABETES MELLITUS
  4. GLIPIZIDE. [Concomitant]
     Active Substance: GLIPIZIDE

REACTIONS (7)
  - Injection site haemorrhage [Unknown]
  - Weight decreased [Unknown]
  - Underdose [Unknown]
  - Injection site reaction [Unknown]
  - Drug dose omission [Unknown]
  - Glycosylated haemoglobin decreased [Unknown]
  - Sinus disorder [Unknown]

NARRATIVE: CASE EVENT DATE: 2014
